FAERS Safety Report 7766633-X (Version None)
Quarter: 2011Q3

REPORT INFORMATION
  Report Type: 
  Country: None (occurrence: None)
  Receive Date: 20110916
  Receipt Date: 20110907
  Transmission Date: 20111222
  Serious: Yes (Other)
  Sender: FDA-Public Use
  Company Number: US-GDP-11411475

PATIENT
  Sex: Female

DRUGS (2)
  1. ORACEA [Suspect]
     Indication: ROSACEA
     Dosage: (40 MG QD ORAL)
     Route: 048
     Dates: start: 20110311, end: 20110601
  2. METROGEL [Suspect]
     Indication: ROSACEA
     Dosage: (1 DF QD TOPICAL)
     Route: 061
     Dates: start: 20110311

REACTIONS (9)
  - HYPOACUSIS [None]
  - HYPOAESTHESIA [None]
  - ASTHENIA [None]
  - ARTHRALGIA [None]
  - MYALGIA [None]
  - HEADACHE [None]
  - FATIGUE [None]
  - PARAESTHESIA [None]
  - BENIGN INTRACRANIAL HYPERTENSION [None]
